FAERS Safety Report 5050408-9 (Version None)
Quarter: 2006Q3

REPORT INFORMATION
  Report Type: 
  Country: None (occurrence: None)
  Receive Date: 20060707
  Receipt Date: 20060626
  Transmission Date: 20061208
  Serious: No
  Sender: FDA-Public Use
  Company Number: 2006-144533-NL

PATIENT
  Age: 78 Year

DRUGS (1)
  1. DANAPAROID SODIUM [Suspect]
     Dosage: 2000 ANTI_XA Q1HR
     Route: 051

REACTIONS (3)
  - PULMONARY EMBOLISM [None]
  - RESPIRATORY GAS EXCHANGE DISORDER [None]
  - THROMBOCYTOPENIA [None]
